FAERS Safety Report 19938659 (Version 1)
Quarter: 2021Q4

REPORT INFORMATION
  Report Type: Spontaneous
  Country: CN (occurrence: CN)
  Receive Date: 20211011
  Receipt Date: 20211011
  Transmission Date: 20220303
  Serious: Yes (Hospitalization, Other)
  Sender: FDA-Public Use
  Company Number: CN-GLAXOSMITHKLINE-CN2021APC202376

PATIENT

DRUGS (6)
  1. PAROXETINE HYDROCHLORIDE [Interacting]
     Active Substance: PAROXETINE HYDROCHLORIDE
     Indication: Depression
     Dosage: 40 MILLIGRAM, QD
     Route: 065
  2. WARFARIN SODIUM [Interacting]
     Active Substance: WARFARIN SODIUM
     Indication: Atrial fibrillation
     Dosage: 2.5 MILLIGRAM, QD
     Route: 065
  3. ROSUVASTATIN CALCIUM [Interacting]
     Active Substance: ROSUVASTATIN CALCIUM
     Indication: Lipids decreased
     Dosage: 5 MILLIGRAM, QD
     Route: 065
  4. ROSUVASTATIN CALCIUM [Interacting]
     Active Substance: ROSUVASTATIN CALCIUM
     Dosage: 20 MILLIGRAM, QD
     Route: 048
  5. OMEPRAZOLE [Interacting]
     Active Substance: OMEPRAZOLE
     Indication: Abdominal discomfort
     Dosage: 20 MILLIGRAM, QD
     Route: 065
  6. ISOSORBIDE MONONITRATE [Concomitant]
     Active Substance: ISOSORBIDE MONONITRATE
     Indication: Coronary artery disease
     Dosage: 50 MILLIGRAM, QD
     Route: 065

REACTIONS (10)
  - Cerebral infarction [Unknown]
  - Muscular weakness [Unknown]
  - Vomiting [Unknown]
  - Carotid artery stenosis [Unknown]
  - Lacunar infarction [Unknown]
  - Dizziness [Unknown]
  - Nausea [Unknown]
  - International normalised ratio fluctuation [Unknown]
  - Hyperhomocysteinaemia [Unknown]
  - Drug interaction [Unknown]
